FAERS Safety Report 7065301-X (Version None)
Quarter: 2010Q4

REPORT INFORMATION
  Report Type: 
  Country: None (occurrence: None)
  Receive Date: 20101022
  Receipt Date: 20101022
  Transmission Date: 20110411
  Serious: Yes (Hospitalization)
  Sender: FDA-Public Use
  Company Number: None

PATIENT
  Age: 38 Year
  Sex: Female
  Weight: 53 kg

DRUGS (1)
  1. EPINEPHRINE [Suspect]
     Indication: HYPERSENSITIVITY
     Dosage: 0.5 MG ONCE SQ
     Route: 058
     Dates: start: 20100603, end: 20100603

REACTIONS (2)
  - CONFUSIONAL STATE [None]
  - TACHYCARDIA [None]
